FAERS Safety Report 21084025 (Version 1)
Quarter: 2022Q3

REPORT INFORMATION
  Report Type: Spontaneous
  Country: KR (occurrence: KR)
  Receive Date: 20220714
  Receipt Date: 20220714
  Transmission Date: 20221027
  Serious: No
  Sender: FDA-Public Use
  Company Number: KR-JAZZ-2022-KR-014021

PATIENT
  Age: 14 Year
  Sex: Female

DRUGS (8)
  1. EPIDIOLEX [Suspect]
     Active Substance: CANNABIDIOL
     Indication: Lennox-Gastaut syndrome
     Dosage: 4 CC, BID
     Route: 048
     Dates: start: 202104
  2. EPIDIOLEX [Suspect]
     Active Substance: CANNABIDIOL
     Dosage: 1.5 CC BID
     Route: 048
     Dates: start: 202104
  3. EPIDIOLEX [Suspect]
     Active Substance: CANNABIDIOL
     Dosage: 2.2 CC BID
     Route: 048
     Dates: start: 202106
  4. EPIDIOLEX [Suspect]
     Active Substance: CANNABIDIOL
     Dosage: 2.5 CC BID
     Route: 048
     Dates: start: 202107
  5. EPIDIOLEX [Suspect]
     Active Substance: CANNABIDIOL
     Dosage: 3 CC BID
     Route: 048
     Dates: start: 202108
  6. EPIDIOLEX [Suspect]
     Active Substance: CANNABIDIOL
     Dosage: 3.5 CC BID
     Route: 048
     Dates: start: 202110
  7. EPIDIOLEX [Suspect]
     Active Substance: CANNABIDIOL
     Dosage: 4 CC BID
     Route: 048
     Dates: start: 202112
  8. EPIDIOLEX [Suspect]
     Active Substance: CANNABIDIOL
     Dosage: 4.5 CC BID
     Route: 048
     Dates: start: 202204

REACTIONS (1)
  - Ocular hyperaemia [Not Recovered/Not Resolved]

NARRATIVE: CASE EVENT DATE: 20220301
